FAERS Safety Report 7276545-6 (Version None)
Quarter: 2011Q1

REPORT INFORMATION
  Report Type: 
  Country: None (occurrence: None)
  Receive Date: 20110204
  Receipt Date: 20110127
  Transmission Date: 20110831
  Serious: Yes (Life-Threatening, Other)
  Sender: FDA-Public Use
  Company Number: JP-PFIZER INC-2011017403

PATIENT
  Age: 60 Year
  Sex: Male

DRUGS (1)
  1. ESTRACYT [Suspect]
     Dosage: UNK
     Route: 048
     Dates: start: 20100201

REACTIONS (3)
  - CEREBRAL INFARCTION [None]
  - PULMONARY EMBOLISM [None]
  - MYOCARDIAL INFARCTION [None]
